FAERS Safety Report 16393552 (Version 1)
Quarter: 2019Q3

REPORT INFORMATION
  Report Type: Spontaneous
  Country: US (occurrence: US)
  Receive Date: 20190603
  Receipt Date: 20190603
  Transmission Date: 20191004
  Serious: Yes (Life-Threatening, Hospitalization, Disabling, Other)
  Sender: FDA-Public Use
  Company Number: None

PATIENT
  Age: 57 Year
  Sex: Male
  Weight: 123.75 kg

DRUGS (10)
  1. EVEROLUMUS-ELUTING PLATINUM CHROMIUM CORONARY STENT [Concomitant]
  2. ELIQUIS [Concomitant]
     Active Substance: APIXABAN
  3. COQ10 [Concomitant]
     Active Substance: UBIDECARENONE
  4. MULTAQ [Suspect]
     Active Substance: DRONEDARONE
     Indication: ATRIAL FIBRILLATION
     Dosage: ?          QUANTITY:1 TABLET(S);?
     Route: 048
     Dates: start: 20180216, end: 20180313
  5. CARVEDILOL. [Concomitant]
     Active Substance: CARVEDILOL
  6. ROSUVOSTATIN [Concomitant]
  7. BAYER ASPIRIN [Concomitant]
     Active Substance: ASPIRIN
  8. AZATHIOPRINE. [Concomitant]
     Active Substance: AZATHIOPRINE
  9. LEVOTHYROXIN [Concomitant]
     Active Substance: LEVOTHYROXINE
  10. AMPLODIPINE [Concomitant]

REACTIONS (2)
  - Autoimmune hepatitis [None]
  - Hepatic enzyme increased [None]

NARRATIVE: CASE EVENT DATE: 20180310
